FAERS Safety Report 8381658-1 (Version None)
Quarter: 2012Q2

REPORT INFORMATION
  Report Type: 
  Country: None (occurrence: None)
  Receive Date: 20120524
  Receipt Date: 20120514
  Transmission Date: 20120825
  Serious: No
  Sender: FDA-Public Use
  Company Number: US-ASTRAZENECA-2012SE30925

PATIENT
  Age: 28 Year
  Sex: Male

DRUGS (3)
  1. ZANTAC [Concomitant]
  2. NEXIUM [Suspect]
     Indication: ULCER HAEMORRHAGE
     Route: 048
     Dates: end: 20110101
  3. NEXIUM [Suspect]
     Indication: EROSIVE OESOPHAGITIS
     Route: 048
     Dates: end: 20110101

REACTIONS (5)
  - DIARRHOEA [None]
  - WEIGHT INCREASED [None]
  - OFF LABEL USE [None]
  - NAUSEA [None]
  - VOMITING [None]
